FAERS Safety Report 15549632 (Version 3)
Quarter: 2019Q1

REPORT INFORMATION
  Report Type: Spontaneous
  Country: PT (occurrence: PT)
  Receive Date: 20181025
  Receipt Date: 20190129
  Transmission Date: 20190417
  Serious: Yes (Hospitalization, Other)
  Sender: FDA-Public Use
  Company Number: PT-AUROBINDO-AUR-APL-2018-051235

PATIENT
  Age: 38 Year
  Sex: Female

DRUGS (5)
  1. PHENYTOIN. [Suspect]
     Active Substance: PHENYTOIN
     Indication: EPILEPSY
     Dosage: UNK
     Route: 065
  2. WARFARIN [Suspect]
     Active Substance: WARFARIN
     Indication: VENOUS THROMBOSIS
  3. CARBAMAZAPINE [Suspect]
     Active Substance: CARBAMAZEPINE
     Indication: EPILEPSY
     Dosage: UNK
     Route: 065
  4. NAPROXEN. [Suspect]
     Active Substance: NAPROXEN
     Indication: SWELLING
     Dosage: UNK
     Route: 065
  5. WARFARIN [Suspect]
     Active Substance: WARFARIN
     Indication: INTRACRANIAL VENOUS SINUS THROMBOSIS
     Dosage: UNK
     Route: 016

REACTIONS (8)
  - Eyelid oedema [Unknown]
  - Respiratory distress [Unknown]
  - Blister [Unknown]
  - Ocular discomfort [Unknown]
  - Tachycardia [Unknown]
  - Rash maculo-papular [Unknown]
  - Pyrexia [Unknown]
  - Stevens-Johnson syndrome [Unknown]
